FAERS Safety Report 15110879 (Version 1)
Quarter: 2018Q3

REPORT INFORMATION
  Report Type: Spontaneous
  Country: GR (occurrence: GR)
  Receive Date: 20180705
  Receipt Date: 20180705
  Transmission Date: 20181010
  Serious: Yes (Other)
  Sender: FDA-Public Use
  Company Number: GR-PFIZER INC-2018263568

PATIENT
  Sex: Female
  Weight: 94 kg

DRUGS (1)
  1. LIPITOR [Suspect]
     Active Substance: ATORVASTATIN CALCIUM
     Indication: HYPERCHOLESTEROLAEMIA
     Dosage: 1 DF, 1X/DAY
     Route: 048
     Dates: start: 20171128, end: 20171205

REACTIONS (3)
  - Hypoaesthesia [Unknown]
  - Muscle spasms [Unknown]
  - Myalgia [Unknown]
